FAERS Safety Report 9849315 (Version 1)
Quarter: 2014Q1

REPORT INFORMATION
  Report Type: Spontaneous
  Country: FR (occurrence: FR)
  Receive Date: 20140128
  Receipt Date: 20140128
  Transmission Date: 20141002
  Serious: Yes (Hospitalization)
  Sender: FDA-Public Use
  Company Number: FR-ASTRAZENECA-2014SE04404

PATIENT
  Age: 86 Year
  Sex: Female

DRUGS (2)
  1. INEXIUM [Suspect]
     Route: 048
     Dates: end: 20131108
  2. DEROXAT [Suspect]
     Route: 065
     Dates: end: 20131108

REACTIONS (2)
  - Convulsion [Unknown]
  - Hyponatraemia [Recovered/Resolved]
